FAERS Safety Report 22049550 (Version 6)
Quarter: 2023Q2

REPORT INFORMATION
  Report Type: Spontaneous
  Country: IL (occurrence: IL)
  Receive Date: 20230301
  Receipt Date: 20230529
  Transmission Date: 20230721
  Serious: Yes (Other)
  Sender: FDA-Public Use
  Company Number: IL-009507513-2302ISR008471

PATIENT
  Age: 75 Year
  Sex: Male

DRUGS (13)
  1. MOLNUPIRAVIR [Suspect]
     Active Substance: MOLNUPIRAVIR
     Indication: COVID-19 treatment
     Route: 048
  2. PAXLOVID [Suspect]
     Active Substance: NIRMATRELVIR\RITONAVIR
     Indication: COVID-19 treatment
     Dosage: FIRST REGIMEN
     Route: 048
  3. PAXLOVID [Suspect]
     Active Substance: NIRMATRELVIR\RITONAVIR
     Indication: COVID-19
     Dosage: MONOTHERAPY, REGIMEN #2
     Route: 048
  4. PAXLOVID [Suspect]
     Active Substance: NIRMATRELVIR\RITONAVIR
     Dosage: 400, BID
     Dates: start: 20221018, end: 20230209
  5. METFORMIN [Concomitant]
     Active Substance: METFORMIN HYDROCHLORIDE
  6. REMDESIVIR [Concomitant]
     Active Substance: REMDESIVIR
  7. FUROSEMIDE [Concomitant]
     Active Substance: FUROSEMIDE
  8. BENDAMUSTINE [Concomitant]
     Active Substance: BENDAMUSTINE
  9. XARELTO [Concomitant]
     Active Substance: RIVAROXABAN
  10. RITUXIMAB [Concomitant]
     Active Substance: RITUXIMAB
  11. FOLIC ACID [Concomitant]
     Active Substance: FOLIC ACID
  12. SULFAMETHOXAZOLE\TRIMETHOPRIM [Concomitant]
     Active Substance: SULFAMETHOXAZOLE\TRIMETHOPRIM
  13. PREDNISONE [Concomitant]
     Active Substance: PREDNISONE
     Dosage: 2.5 MG, DAILY

REACTIONS (6)
  - Blindness [Unknown]
  - Retinitis [Unknown]
  - Retinal detachment [Unknown]
  - Drug resistance [Unknown]
  - Inappropriate schedule of product administration [Unknown]
  - Off label use [Unknown]

NARRATIVE: CASE EVENT DATE: 20221213
